FAERS Safety Report 19580178 (Version 1)
Quarter: 2021Q3

REPORT INFORMATION
  Report Type: Spontaneous
  Country: US (occurrence: US)
  Receive Date: 20210720
  Receipt Date: 20210720
  Transmission Date: 20211014
  Serious: Yes (Hospitalization)
  Sender: FDA-Public Use
  Company Number: US-DRREDDYS-SPO/USA/21/0137814

PATIENT
  Age: 10 Month
  Sex: Female

DRUGS (1)
  1. VIGABATRIN. [Suspect]
     Active Substance: VIGABATRIN
     Indication: EPILEPSY
     Route: 048

REACTIONS (2)
  - Pyrexia [Unknown]
  - Dyspnoea [Unknown]
